FAERS Safety Report 7141308-9 (Version None)
Quarter: 2010Q4

REPORT INFORMATION
  Report Type: 
  Country: None (occurrence: None)
  Receive Date: 20101203
  Receipt Date: 20101203
  Transmission Date: 20110411
  Serious: Yes (Hospitalization)
  Sender: FDA-Public Use
  Company Number: None

PATIENT
  Sex: Female
  Weight: 53 kg

DRUGS (2)
  1. CISPLATIN [Suspect]
     Dosage: 114 MG
     Dates: end: 20101119
  2. TAXOL [Suspect]
     Dosage: 205 MG
     Dates: end: 20101118

REACTIONS (4)
  - CONSTIPATION [None]
  - DEHYDRATION [None]
  - NAUSEA [None]
  - VOMITING [None]
